FAERS Safety Report 8456489-4 (Version None)
Quarter: 2012Q2

REPORT INFORMATION
  Report Type: 
  Country: None (occurrence: None)
  Receive Date: 20120621
  Receipt Date: 20120618
  Transmission Date: 20120825
  Serious: Yes (Death)
  Sender: FDA-Public Use
  Company Number: BR-ROCHE-1079698

PATIENT
  Sex: Female

DRUGS (2)
  1. MABTHERA [Suspect]
     Indication: RHEUMATOID ARTHRITIS
     Dosage: 2 INFUSIONS IN AUG/2011
     Route: 042
  2. MABTHERA [Suspect]
     Dosage: 2 INFUSIONS IN MAY 2012
     Route: 042

REACTIONS (2)
  - MOUTH HAEMORRHAGE [None]
  - EPISTAXIS [None]
